FAERS Safety Report 7347016-3 (Version None)
Quarter: 2011Q1

REPORT INFORMATION
  Report Type: 
  Country: None (occurrence: None)
  Receive Date: 20110311
  Receipt Date: 20110302
  Transmission Date: 20110831
  Serious: No
  Sender: FDA-Public Use
  Company Number: US-JNJFOC-20110302832

PATIENT
  Age: 38 Year
  Sex: Female

DRUGS (10)
  1. INVEGA SUSTENNA [Suspect]
     Indication: SCHIZOAFFECTIVE DISORDER
     Route: 030
  2. HALDOL DEC [Suspect]
     Indication: PANIC DISORDER
  3. INVEGA [Concomitant]
     Indication: SCHIZOAFFECTIVE DISORDER
     Route: 048
  4. HALDOL DEC [Suspect]
     Indication: SCHIZOAFFECTIVE DISORDER
  5. INVEGA SUSTENNA [Suspect]
     Route: 030
  6. INVEGA SUSTENNA [Suspect]
     Route: 030
  7. PROPRANOLOL [Concomitant]
     Route: 065
  8. INVEGA [Concomitant]
     Indication: PANIC DISORDER
     Route: 048
  9. GEODON [Concomitant]
     Route: 048
  10. INVEGA SUSTENNA [Suspect]
     Indication: PANIC DISORDER
     Route: 030

REACTIONS (2)
  - AKATHISIA [None]
  - STEREOTYPY [None]
